FAERS Safety Report 4465248-9 (Version None)
Quarter: 2004Q3

REPORT INFORMATION
  Report Type: 
  Country: None (occurrence: None)
  Receive Date: 20040929
  Receipt Date: 20040929
  Transmission Date: 20050211
  Serious: Yes (Life-Threatening)
  Sender: FDA-Public Use
  Company Number: None

PATIENT
  Sex: Female
  Weight: 13 kg

DRUGS (18)
  1. INTRALIPID 20% [Suspect]
     Indication: GASTROINTESTINAL DISORDER
     Dosage: 74 ML IN TPN DAILY
     Dates: start: 20021001, end: 20040901
  2. INTRALIPID 20% [Suspect]
     Indication: VOLVULUS OF BOWEL
     Dosage: 74 ML IN TPN DAILY
     Dates: start: 20021001, end: 20040901
  3. INTRALIPID 20% [Suspect]
  4. INTRALIPID 20% [Suspect]
  5. INTRALIPID 20% [Suspect]
  6. INTRALIPID 20% [Suspect]
  7. INTRALIPID 20% [Suspect]
  8. INTRALIPID 20% [Suspect]
  9. INTRALIPID 20% [Suspect]
  10. INTRALIPID 20% [Suspect]
  11. DEXTROSE [Concomitant]
  12. INTRALIPID 20% [Suspect]
  13. INTRALIPID 20% [Suspect]
  14. INTRALIPID 20% [Suspect]
  15. TRAVASOL 10% [Concomitant]
  16. M.V.I. [Concomitant]
  17. HEPARIN [Concomitant]
  18. LEVOCARNITINE [Concomitant]

REACTIONS (5)
  - BACTERIAL SEPSIS [None]
  - BILIRUBIN CONJUGATED INCREASED [None]
  - BLOOD BILIRUBIN INCREASED [None]
  - FUNGAL SEPSIS [None]
  - HEPATIC FAILURE [None]
